FAERS Safety Report 16316320 (Version 1)
Quarter: 2019Q2

REPORT INFORMATION
  Report Type: Spontaneous
  Country: GB (occurrence: GB)
  Receive Date: 20190515
  Receipt Date: 20190515
  Transmission Date: 20190711
  Serious: Yes (Other)
  Sender: FDA-Public Use
  Company Number: GB-TAKEDA-2019TEU005544

PATIENT
  Age: 85 Year
  Sex: Male
  Weight: 68 kg

DRUGS (16)
  1. LOSARTAN. [Concomitant]
     Active Substance: LOSARTAN
     Dosage: UNK UNK, QD
     Dates: start: 20181213
  2. PROCHLORPERAZINE. [Concomitant]
     Active Substance: PROCHLORPERAZINE
     Dosage: UNK UNK, QD
     Dates: start: 20190402
  3. LANSOPRAZOLE. [Suspect]
     Active Substance: LANSOPRAZOLE
     Dosage: 30 MILLIGRAM
     Route: 065
     Dates: start: 20190416
  4. HYPROMELLOSE [Concomitant]
     Active Substance: HYPROMELLOSES
     Dosage: 4 GTT DROPS, QD
     Dates: start: 20170407
  5. FORTISIP [Concomitant]
     Active Substance: CARBOHYDRATES\FATTY ACIDS\MINERALS\PROTEIN\VITAMINS
     Dosage: UNK UNK, QD
     Dates: start: 20190404
  6. ATORVASTATIN [Concomitant]
     Active Substance: ATORVASTATIN
     Dosage: UNK UNK, QD
     Dates: start: 20181213
  7. QUININE [Concomitant]
     Active Substance: QUININE
     Dosage: UNK UNK, QD
     Route: 065
     Dates: start: 20181217, end: 20190416
  8. METOCLOPRAMIDE. [Concomitant]
     Active Substance: METOCLOPRAMIDE
     Dosage: UNK UNK, QD
     Dates: start: 20190402, end: 20190407
  9. LOPERAMIDE [Concomitant]
     Active Substance: LOPERAMIDE
     Dosage: UNK
     Dates: start: 20171010
  10. CAPSAICIN. [Concomitant]
     Active Substance: CAPSAICIN
     Dosage: UNK UNK, QD
     Dates: start: 20161230
  11. INDAPAMIDE. [Concomitant]
     Active Substance: INDAPAMIDE
     Dosage: UNK UNK, QD
     Dates: start: 20181213, end: 20190214
  12. LANSOPRAZOLE. [Suspect]
     Active Substance: LANSOPRAZOLE
     Indication: PRODUCT USED FOR UNKNOWN INDICATION
     Dosage: UNK UNK, QD
     Route: 065
     Dates: start: 20161230, end: 20190214
  13. RANITIDINE. [Concomitant]
     Active Substance: RANITIDINE
     Dosage: UNK UNK, QD
     Dates: start: 20190416
  14. HUMULIN M3 [Concomitant]
     Active Substance: INSULIN HUMAN
     Dosage: UNK
     Dates: start: 20181213
  15. TAMSULOSIN HYDROCHLORIDE. [Concomitant]
     Active Substance: TAMSULOSIN HYDROCHLORIDE
     Dosage: UNK UNK, QD
     Dates: start: 20170814
  16. ACETYLSALICYLIC ACID [Concomitant]
     Active Substance: ASPIRIN
     Dosage: UNK UNK, QD
     Dates: start: 20181213

REACTIONS (2)
  - Swollen tongue [Recovered/Resolved]
  - Ulcer [Unknown]

NARRATIVE: CASE EVENT DATE: 20190416
